FAERS Safety Report 22976208 (Version 12)
Quarter: 2025Q3

REPORT INFORMATION
  Report Type: Report from Study
  Country: US (occurrence: US)
  Receive Date: 20230925
  Receipt Date: 20250702
  Transmission Date: 20251020
  Serious: Yes (Other)
  Sender: TAKEDA
  Company Number: US-TAKEDA-2023TUS089052

PATIENT
  Sex: Female
  Weight: 117 kg

DRUGS (31)
  1. HUMAN IMMUNOGLOBULIN G [Suspect]
     Active Substance: HUMAN IMMUNOGLOBULIN G
     Indication: Immunodeficiency common variable
     Dosage: 30 GRAM, Q4WEEKS
     Dates: start: 20230725
  2. HUMAN IMMUNOGLOBULIN G [Suspect]
     Active Substance: HUMAN IMMUNOGLOBULIN G
  3. REVLIMID [Suspect]
     Active Substance: LENALIDOMIDE
     Indication: Product used for unknown indication
  4. ACETAMINOPHEN [Concomitant]
     Active Substance: ACETAMINOPHEN
  5. EPINEPHRINE [Concomitant]
     Active Substance: EPINEPHRINE
  6. LIDOCAINE [Concomitant]
     Active Substance: LIDOCAINE
  7. HYDROCORTISONE [Concomitant]
     Active Substance: HYDROCORTISONE
  8. ACYCLOVIR [Concomitant]
     Active Substance: ACYCLOVIR
  9. FAMOTIDINE [Concomitant]
     Active Substance: FAMOTIDINE
  10. FOLIC ACID [Concomitant]
     Active Substance: FOLIC ACID
  11. LENALIDOMIDE [Concomitant]
     Active Substance: LENALIDOMIDE
  12. CALCIUM CARBONATE\CHOLECALCIFEROL [Concomitant]
     Active Substance: CALCIUM CARBONATE\CHOLECALCIFEROL
  13. SODIUM CHLORIDE [Concomitant]
     Active Substance: SODIUM CHLORIDE
  14. PANTOPRAZOLE SODIUM [Concomitant]
     Active Substance: PANTOPRAZOLE SODIUM
  15. MAGNESIUM OXIDE [Concomitant]
     Active Substance: MAGNESIUM OXIDE
  16. LORAZEPAM [Concomitant]
     Active Substance: LORAZEPAM
  17. ELIQUIS [Concomitant]
     Active Substance: APIXABAN
  18. METOPROLOL SUCCINATE [Concomitant]
     Active Substance: METOPROLOL SUCCINATE
  19. HEPARIN [Concomitant]
     Active Substance: HEPARIN SODIUM
  20. DEXAMETHASONE [Concomitant]
     Active Substance: DEXAMETHASONE
  21. DEXTROSE [Concomitant]
     Active Substance: DEXTROSE MONOHYDRATE
  22. DIPHENHYDRAMINE [Concomitant]
     Active Substance: DIPHENHYDRAMINE
  23. DIPHENHYDRAMINE HYDROCHLORIDE [Concomitant]
     Active Substance: DIPHENHYDRAMINE HYDROCHLORIDE
  24. GABAPENTIN [Concomitant]
     Active Substance: GABAPENTIN
  25. AMLODIPINE BESYLATE [Concomitant]
     Active Substance: AMLODIPINE BESYLATE
  26. POLYETHYLENE GLYCOL [Concomitant]
     Active Substance: POLYETHYLENE GLYCOL
  27. LORATADINE [Concomitant]
     Active Substance: LORATADINE
  28. TRIAMCINOLONE ACETONIDE [Concomitant]
     Active Substance: TRIAMCINOLONE ACETONIDE
  29. VITAMIN D3 [Concomitant]
     Active Substance: CHOLECALCIFEROL
  30. LIDOCAINE [Concomitant]
     Active Substance: LIDOCAINE
  31. ALBUTEROL SULFATE [Concomitant]
     Active Substance: ALBUTEROL SULFATE

REACTIONS (12)
  - Neuropathy peripheral [Unknown]
  - Eye infection [Recovered/Resolved]
  - Nasopharyngitis [Unknown]
  - Obstruction [Unknown]
  - Bronchitis [Unknown]
  - Somnolence [Unknown]
  - Rash [Unknown]
  - Eye pain [Unknown]
  - Cough [Not Recovered/Not Resolved]
  - Diarrhoea [Unknown]
  - Urticaria [Recovered/Resolved]
  - Fatigue [Unknown]
